FAERS Safety Report 9895171 (Version 1)
Quarter: 2014Q1

REPORT INFORMATION
  Report Type: Spontaneous
  Country: US (occurrence: US)
  Receive Date: 20140213
  Receipt Date: 20140213
  Transmission Date: 20141002
  Serious: No
  Sender: FDA-Public Use
  Company Number: US-BRISTOL-MYERS SQUIBB COMPANY-18924852

PATIENT
  Age: 35 Year
  Sex: Female

DRUGS (2)
  1. ORENCIA [Suspect]
     Dosage: LAST DOSE-12MAY13
     Route: 058
     Dates: start: 20130424
  2. METHOTREXATE [Suspect]
     Dates: start: 20130424

REACTIONS (2)
  - Malaise [Unknown]
  - Fatigue [Unknown]
